FAERS Safety Report 9234403 (Version 1)
Quarter: 2013Q2

REPORT INFORMATION
  Report Type: Report from Study
  Country: DE (occurrence: DE)
  Receive Date: 20130416
  Receipt Date: 20130416
  Transmission Date: 20140414
  Serious: Yes (Death, Hospitalization)
  Sender: FDA-Public Use
  Company Number: DE-MERCK-1303DEU003732

PATIENT
  Age: 62 Year
  Sex: Female
  Weight: 82 kg

DRUGS (35)
  1. TEMOZOLOMIDE [Suspect]
     Indication: GLIOBLASTOMA MULTIFORME
     Route: 048
  2. BEVACIZUMAB [Suspect]
     Indication: GLIOBLASTOMA MULTIFORME
     Dosage: 900 MG, BIW
     Route: 042
     Dates: start: 20110317, end: 20110908
  3. IRINOTECAN HYDROCHLORIDE [Suspect]
     Indication: GLIOBLASTOMA MULTIFORME
     Dosage: 245 MG, BIW
     Route: 042
     Dates: start: 20110512
  4. LEVETIRACETAM [Concomitant]
     Dosage: 2000 MG, UNK
     Dates: start: 201011, end: 20110425
  5. LEVETIRACETAM [Concomitant]
     Dosage: 1750 MG, UNK
     Dates: start: 20110426, end: 20110512
  6. LEVETIRACETAM [Concomitant]
     Dosage: 2000 MG, UNK
     Dates: start: 20110513
  7. NEXIUM [Concomitant]
     Dosage: 40 MG, UNK
     Dates: start: 20110421
  8. NEXIUM [Concomitant]
     Dosage: UNK
     Dates: start: 20110421
  9. NEXIUM [Concomitant]
     Dosage: UNK
     Dates: start: 201105, end: 2011
  10. NEXIUM [Concomitant]
     Dosage: UNK
     Dates: start: 20110805
  11. L-THYROXIN [Concomitant]
     Dosage: UNK MICROGRAM, UNK
     Dates: start: 201106
  12. EUNERPAN [Concomitant]
     Dosage: UNK
     Dates: start: 201103
  13. CLEXANE (ENOXAPARIN SODIUM) [Concomitant]
     Dosage: UNK
     Dates: start: 201103
  14. DIMENHYDRINATE [Concomitant]
     Dosage: UNK MG, UNK
     Dates: start: 20110318, end: 20110319
  15. PASPERTIN [Concomitant]
     Dosage: UNK, PRN
     Dates: start: 20110330
  16. DEXAMETHASONE [Concomitant]
     Dosage: UNK
     Dates: start: 20110404, end: 20110405
  17. DEXAMETHASONE [Concomitant]
     Dosage: UNK
     Dates: start: 20110406, end: 20110406
  18. DEXAMETHASONE [Concomitant]
     Dosage: UNK
     Dates: start: 20110407, end: 20110411
  19. DEXAMETHASONE [Concomitant]
     Dosage: UNK
     Dates: start: 20110412, end: 20110414
  20. DEXAMETHASONE [Concomitant]
     Dosage: UNK
     Dates: start: 20110415, end: 20110427
  21. DEXAMETHASONE [Concomitant]
     Dosage: UNK
     Dates: start: 20110714, end: 20110726
  22. DEXAMETHASONE [Concomitant]
     Dosage: UNK
     Dates: start: 20110727, end: 20110804
  23. DEXAMETHASONE [Concomitant]
     Dosage: UNK
     Dates: start: 20110805
  24. SULFAMETHOXAZOLE (+) TRIMETHOPRIM [Concomitant]
     Dosage: 960 MG, TIW
     Dates: start: 20110407, end: 20110426
  25. SULFAMETHOXAZOLE (+) TRIMETHOPRIM [Concomitant]
     Dosage: 1920 MG DAILY
     Dates: start: 20110701, end: 20110710
  26. VOTUM [Concomitant]
     Dosage: UNK
     Dates: start: 20110414, end: 20110421
  27. VOTUM [Concomitant]
     Dosage: UNK
     Dates: start: 20110502
  28. AMPHO MORONAL [Concomitant]
     Dosage: UNK
     Dates: start: 20110414
  29. TRAMADOL HYDROCHLORIDE [Concomitant]
     Dosage: UNK, PRN
     Dates: start: 20110424
  30. HYDROCHLOROTHIAZIDE [Concomitant]
     Dosage: UNK
     Dates: start: 20110509
  31. PANTOPRAZOLE [Concomitant]
     Dosage: 10 MG DAILY
     Dates: start: 20110610, end: 20110804
  32. MOVICOL [Concomitant]
     Dosage: UNK, PRN
     Dates: start: 201106
  33. DULOXETINE HYDROCHLORIDE [Concomitant]
     Dosage: UNK
     Dates: start: 2011
  34. NOVAMINSULFON [Concomitant]
  35. MAGNESIUM (UNSPECIFIED) [Concomitant]
     Dosage: 90 MG DAILY
     Dates: start: 201103

REACTIONS (2)
  - Convulsion [Recovered/Resolved]
  - General physical health deterioration [Fatal]
